FAERS Safety Report 21817372 (Version 4)
Quarter: 2023Q1

REPORT INFORMATION
  Report Type: Spontaneous
  Country: HU (occurrence: HU)
  Receive Date: 20230104
  Receipt Date: 20230202
  Transmission Date: 20230418
  Serious: Yes (Death, Hospitalization, Other)
  Sender: FDA-Public Use
  Company Number: None

PATIENT
  Age: 90 Year
  Sex: Male
  Weight: 62 kg

DRUGS (10)
  1. MEKINIST [Suspect]
     Active Substance: TRAMETINIB DIMETHYL SULFOXIDE
     Indication: Malignant melanoma
     Dosage: 1 DOSAGE FORM, Q24H
     Route: 048
     Dates: start: 20221020, end: 20221026
  2. MEKINIST [Suspect]
     Active Substance: TRAMETINIB DIMETHYL SULFOXIDE
     Dosage: 1 DOSAGE FORM, Q24H
     Route: 048
     Dates: start: 20221102
  3. TAFINLAR [Suspect]
     Active Substance: DABRAFENIB MESYLATE
     Indication: Malignant melanoma
     Dosage: 1 DOSAGE FORM, Q12H (FROM 15 NOV 2022 2 TABLETS TWICE A DAY)
     Route: 048
     Dates: start: 20221020, end: 20221130
  4. PANTOPRAZOLE [Concomitant]
     Active Substance: PANTOPRAZOLE
     Indication: Prophylaxis
     Dosage: 20 MG, Q24H
     Route: 048
     Dates: start: 2014
  5. NEBIVOLOL [Concomitant]
     Active Substance: NEBIVOLOL
     Indication: Hypertension
     Dosage: 1.25 MG, Q24H
     Route: 048
     Dates: start: 2014, end: 202211
  6. HYDROCHLOROTHIAZIDE [Concomitant]
     Active Substance: HYDROCHLOROTHIAZIDE
     Indication: Hypertension
     Dosage: 12.5 MG, Q24H
     Route: 048
     Dates: start: 2014, end: 202211
  7. ENALAPRIL [Concomitant]
     Active Substance: ENALAPRIL
     Indication: Hypertension
     Dosage: 20 MG, Q24H
     Route: 048
     Dates: start: 2014, end: 202211
  8. DABIGATRAN ETEXILATE [Concomitant]
     Active Substance: DABIGATRAN ETEXILATE
     Indication: Pulmonary embolism
     Dosage: 110 MG, Q12H
     Route: 048
     Dates: start: 201412
  9. NEBIVOLOL [Concomitant]
     Active Substance: NEBIVOLOL
     Indication: Hypertension
     Dosage: 1.25 MG, Q24H
     Route: 048
     Dates: start: 2014, end: 202211
  10. PRADAXA [Concomitant]
     Active Substance: DABIGATRAN ETEXILATE MESYLATE
     Indication: Pulmonary embolism
     Dosage: 110 MG, Q12H
     Route: 048
     Dates: start: 201412

REACTIONS (10)
  - Acute kidney injury [Fatal]
  - Pneumonitis aspiration [Fatal]
  - Rhabdomyolysis [Fatal]
  - Fall [Unknown]
  - Asthenia [Unknown]
  - Blood creatine phosphokinase increased [Unknown]
  - Lethargy [Unknown]
  - Confusional state [Unknown]
  - Hypotension [Unknown]
  - Urine output decreased [Unknown]

NARRATIVE: CASE EVENT DATE: 20221001
